FAERS Safety Report 9003372 (Version 4)
Quarter: 2013Q1

REPORT INFORMATION
  Report Type: Spontaneous
  Country: US (occurrence: US)
  Receive Date: 20130108
  Receipt Date: 20130227
  Transmission Date: 20140127
  Serious: Yes (Hospitalization)
  Sender: FDA-Public Use
  Company Number: US-GILEAD-2013-0067341

PATIENT
  Sex: Female

DRUGS (5)
  1. LETAIRIS [Suspect]
     Indication: COR PULMONALE CHRONIC
     Dosage: 5 MG, QD
     Route: 048
     Dates: start: 20110119
  2. LETAIRIS [Suspect]
     Indication: PORTOPULMONARY HYPERTENSION
  3. REVATIO [Concomitant]
  4. SILDENAFIL [Concomitant]
  5. TYVASO [Concomitant]

REACTIONS (1)
  - Liver disorder [Unknown]
